FAERS Safety Report 12358173 (Version 1)
Quarter: 2016Q2

REPORT INFORMATION
  Report Type: Spontaneous
  Country: US (occurrence: None)
  Receive Date: 20160511
  Receipt Date: 20160511
  Transmission Date: 20160815
  Serious: Yes (Hospitalization, Disabling)
  Sender: FDA-Public Use
  Company Number: None

PATIENT
  Age: 67 Year
  Sex: Male

DRUGS (17)
  1. APIXABAN [Suspect]
     Active Substance: APIXABAN
     Indication: ARTERIAL OCCLUSIVE DISEASE
     Route: 048
     Dates: start: 20160330, end: 20160331
  2. VITAMIN E [Concomitant]
     Active Substance: .ALPHA.-TOCOPHEROL
  3. ATORVASTATIN [Concomitant]
     Active Substance: ATORVASTATIN
  4. APIXABAN [Suspect]
     Active Substance: APIXABAN
     Indication: HYPERTENSION
     Route: 048
     Dates: start: 20160330, end: 20160331
  5. VITAMIN C [Concomitant]
     Active Substance: ASCORBIC ACID
  6. ELIQUIS [Concomitant]
     Active Substance: APIXABAN
  7. PANTOPRAZOLE SODIUM. [Concomitant]
     Active Substance: PANTOPRAZOLE SODIUM
  8. SOTALOL AF [Concomitant]
  9. HYDRALAZINE [Concomitant]
     Active Substance: HYDRALAZINE HYDROCHLORIDE
  10. HYDROCHLOROTHIAZIDE. [Concomitant]
     Active Substance: HYDROCHLOROTHIAZIDE
  11. ISOSORBIDE MONO ER [Concomitant]
  12. FISH OIL [Concomitant]
     Active Substance: FISH OIL
  13. AMLODIPINE [Concomitant]
     Active Substance: AMLODIPINE BESYLATE
  14. LOSARTAN POT [Concomitant]
     Active Substance: LOSARTAN POTASSIUM
  15. TAMSULOSIN [Concomitant]
     Active Substance: TAMSULOSIN
  16. ASPIRIN EC [Concomitant]
     Active Substance: ASPIRIN
  17. POTASSIUM [Concomitant]
     Active Substance: POTASSIUM

REACTIONS (3)
  - Chest pain [None]
  - Oesophagitis [None]
  - Gingival bleeding [None]

NARRATIVE: CASE EVENT DATE: 20160402
